FAERS Safety Report 8488983 (Version 2)
Quarter: 2013Q1

REPORT INFORMATION
  Report Type: Spontaneous
  Country: US (occurrence: US)
  Receive Date: 20120402
  Receipt Date: 20130304
  Transmission Date: 20140127
  Serious: No
  Sender: FDA-Public Use
  Company Number: US-ABBOTT-12P-163-0904964-00

PATIENT
  Sex: Male
  Weight: 70.37 kg

DRUGS (4)
  1. ANDROGEL [Suspect]
     Indication: BLOOD TESTOSTERONE DECREASED
  2. ASACOL [Concomitant]
     Indication: CROHN^S DISEASE
  3. CREON [Concomitant]
     Indication: CROHN^S DISEASE
  4. ALBUTEROL SOL [Concomitant]
     Indication: CHRONIC OBSTRUCTIVE PULMONARY DISEASE

REACTIONS (1)
  - Drug ineffective [None]
